FAERS Safety Report 8599100 (Version 3)
Quarter: 2013Q4

REPORT INFORMATION
  Report Type: Spontaneous
  Country: US (occurrence: US)
  Receive Date: 20120605
  Receipt Date: 20131129
  Transmission Date: 20140711
  Serious: Yes (Disabling)
  Sender: FDA-Public Use
  Company Number: US-ASTRAZENECA-2012SE34607

PATIENT
  Age: 47 Year
  Sex: Female
  Weight: 58.1 kg

DRUGS (10)
  1. NEXIUM [Suspect]
     Indication: GASTROOESOPHAGEAL REFLUX DISEASE
     Route: 048
     Dates: start: 1980, end: 2013
  2. PRILOSEC [Suspect]
     Indication: GASTROOESOPHAGEAL REFLUX DISEASE
     Route: 048
     Dates: start: 1980, end: 2013
  3. PROTONIX [Concomitant]
     Indication: GASTROOESOPHAGEAL REFLUX DISEASE
     Dates: start: 1980, end: 2013
  4. PREVACID [Concomitant]
     Indication: GASTROOESOPHAGEAL REFLUX DISEASE
     Route: 048
     Dates: start: 2013
  5. ZANTAC [Concomitant]
     Dates: start: 2000
  6. TAGAMET [Concomitant]
     Dates: start: 2001
  7. ROLAIDS [Concomitant]
  8. ALBUTEROL [Concomitant]
  9. TRIADINE [Concomitant]
     Indication: MUSCLE SPASMS
  10. TRIADINE [Concomitant]
     Indication: BONE PAIN

REACTIONS (9)
  - Asthma [Unknown]
  - Chronic obstructive pulmonary disease [Unknown]
  - Osteoarthritis [Unknown]
  - Scoliosis [Unknown]
  - Bone density decreased [Unknown]
  - Osteoporosis [Unknown]
  - Ankle fracture [Unknown]
  - Bone pain [Unknown]
  - Lower limb fracture [Unknown]
